FAERS Safety Report 9333390 (Version 1)
Quarter: 2013Q2

REPORT INFORMATION
  Report Type: Spontaneous
  Country: US (occurrence: None)
  Receive Date: 20130604
  Receipt Date: 20130604
  Transmission Date: 20140414
  Serious: Yes (Hospitalization)
  Sender: FDA-Public Use
  Company Number: IDR-00759

PATIENT
  Age: 88 Year
  Sex: Female

DRUGS (1)
  1. INDERAL LA [Suspect]
     Indication: HYPERTENSION
     Route: 048

REACTIONS (3)
  - Pulmonary oedema [None]
  - Oedema peripheral [None]
  - Dyspnoea [None]
